FAERS Safety Report 25218657 (Version 1)
Quarter: 2025Q2

REPORT INFORMATION
  Report Type: Spontaneous
  Country: PL (occurrence: PL)
  Receive Date: 20250421
  Receipt Date: 20250421
  Transmission Date: 20250717
  Serious: Yes (Other)
  Sender: BIOVITRUM
  Company Number: PL-BIOVITRUM-2025-PL-005345

PATIENT
  Sex: Male

DRUGS (2)
  1. ANAKINRA [Suspect]
     Active Substance: ANAKINRA
     Indication: Chronic infantile neurological cutaneous and articular syndrome
     Route: 058
     Dates: start: 201803
  2. ANAKINRA [Suspect]
     Active Substance: ANAKINRA
     Route: 058
     Dates: start: 201903

REACTIONS (4)
  - Visual impairment [Unknown]
  - Optic neuritis [Unknown]
  - Pseudopapilloedema [Unknown]
  - Retinitis [Unknown]

NARRATIVE: CASE EVENT DATE: 20190301
